FAERS Safety Report 9790863 (Version 3)
Quarter: 2014Q4

REPORT INFORMATION
  Report Type: Spontaneous
  Country: DK (occurrence: IT)
  Receive Date: 20131231
  Receipt Date: 20141002
  Transmission Date: 20150529
  Serious: Yes (Life-Threatening)
  Sender: FDA-Public Use
  Company Number: IT-FRI-1000052566

PATIENT
  Age: 38 Year
  Sex: Male

DRUGS (8)
  1. TRANQUIRIT 0,5% [Suspect]
     Active Substance: DIAZEPAM
     Indication: DEPRESSION
     Dosage: 20 GTT
     Route: 048
     Dates: start: 20130311, end: 20130903
  2. LORAZEPAM ABC [Suspect]
     Active Substance: LORAZEPAM
     Indication: DEPRESSION
     Dosage: 7.5 MG
     Route: 048
     Dates: start: 20130311, end: 20130903
  3. ESCITALOPRAM [Suspect]
     Active Substance: ESCITALOPRAM OXALATE
     Indication: DEPRESSION
     Dosage: 5 DROPS DAILY
     Route: 048
     Dates: start: 20130311, end: 20130903
  4. AKINETON [Suspect]
     Active Substance: BIPERIDEN HYDROCHLORIDE
     Indication: DEPRESSION
     Dosage: 4 MG
     Route: 048
     Dates: start: 20130311, end: 20130903
  5. ETHANOL [Concomitant]
     Active Substance: ALCOHOL
     Indication: ALCOHOL ABUSE
  6. VENLAFAXINE [Suspect]
     Active Substance: VENLAFAXINE HYDROCHLORIDE
     Indication: DEPRESSION
     Dosage: 150 MG
     Route: 048
     Dates: start: 20130311, end: 20130903
  7. INVEGA [Suspect]
     Active Substance: PALIPERIDONE
     Indication: DEPRESSION
     Dosage: 9 MG
     Route: 048
     Dates: start: 20130311, end: 20130903
  8. DEPAKIN [Suspect]
     Active Substance: VALPROATE SODIUM
     Indication: DEPRESSION
     Dosage: 750 MG
     Route: 048
     Dates: start: 20130311, end: 20130903

REACTIONS (2)
  - Drug interaction [Recovered/Resolved]
  - Coma [Recovered/Resolved]

NARRATIVE: CASE EVENT DATE: 20130903
